FAERS Safety Report 5036459-9 (Version None)
Quarter: 2006Q2

REPORT INFORMATION
  Report Type: 
  Country: None (occurrence: None)
  Receive Date: 20060626
  Receipt Date: 20060608
  Transmission Date: 20061013
  Serious: Yes (Death, Hospitalization)
  Sender: FDA-Public Use
  Company Number: MPS1-10536

PATIENT
  Age: 7 Year
  Sex: Male
  Weight: 15.2 kg

DRUGS (1)
  1. ALDURAZYME [Suspect]
     Indication: MUCOPOLYSACCHARIDOSIS I
     Dosage: 0.58 NG/KG UNK IV
     Dates: start: 20040601, end: 20060602

REACTIONS (1)
  - PNEUMONIA [None]
